FAERS Safety Report 5768027-5 (Version None)
Quarter: 2008Q2

REPORT INFORMATION
  Report Type: 
  Country: None (occurrence: None)
  Receive Date: 20080612
  Receipt Date: 20080125
  Transmission Date: 20081010
  Serious: No
  Sender: FDA-Public Use
  Company Number: US-ASTRAZENECA-2007UW27087

PATIENT
  Age: 67 Year
  Sex: Female
  Weight: 82.6 kg

DRUGS (4)
  1. FASLODEX [Suspect]
     Indication: BREAST CANCER
     Route: 030
     Dates: start: 20070501
  2. COUMADIN [Suspect]
  3. GEMFIBROZIL [Concomitant]
  4. LISINOPRIL [Concomitant]

REACTIONS (1)
  - DRUG LEVEL FLUCTUATING [None]
